FAERS Safety Report 11319345 (Version 1)
Quarter: 2015Q3

REPORT INFORMATION
  Report Type: Spontaneous
  Country: US (occurrence: None)
  Receive Date: 20150728
  Receipt Date: 20150728
  Transmission Date: 20151125
  Serious: Yes (Death, Hospitalization)
  Sender: FDA-Public Use
  Company Number: None

PATIENT
  Age: 74 Year
  Sex: Male

DRUGS (11)
  1. ASPIRIN. [Concomitant]
     Active Substance: ASPIRIN
  2. TRAVOPROST [Concomitant]
     Active Substance: TRAVOPROST
  3. HEPARIN [Suspect]
     Active Substance: HEPARIN SODIUM
     Indication: ATRIAL FIBRILLATION
     Dosage: 1100 UNITS/HR CONTINUOUS IV
     Route: 042
     Dates: start: 20150504, end: 20150506
  4. VANCOMYCIN [Concomitant]
     Active Substance: VANCOMYCIN
  5. WARFARIN [Suspect]
     Active Substance: WARFARIN
     Route: 048
  6. RANITIDINE [Concomitant]
     Active Substance: RANITIDINE\RANITIDINE HYDROCHLORIDE
  7. VALSARTAN. [Concomitant]
     Active Substance: VALSARTAN
  8. BRIMONIDINE [Concomitant]
     Active Substance: BRIMONIDINE TARTRATE
  9. MAGNESIUM SULFATE. [Concomitant]
     Active Substance: MAGNESIUM SULFATE
  10. AMIODARONE [Concomitant]
     Active Substance: AMIODARONE
  11. LEVOTHYROXINE. [Concomitant]
     Active Substance: LEVOTHYROXINE

REACTIONS (4)
  - International normalised ratio fluctuation [None]
  - Intraventricular haemorrhage [None]
  - Fall [None]
  - Activated partial thromboplastin time prolonged [None]

NARRATIVE: CASE EVENT DATE: 20150506
